FAERS Safety Report 7323233-3 (Version None)
Quarter: 2011Q1

REPORT INFORMATION
  Report Type: 
  Country: None (occurrence: None)
  Receive Date: 20110217
  Receipt Date: 20110204
  Transmission Date: 20110831
  Serious: Yes (Hospitalization)
  Sender: FDA-Public Use
  Company Number: 027213

PATIENT
  Sex: Male

DRUGS (8)
  1. BENSERAZIDE HYDROCHLORIDE W/LEVODOPA [Concomitant]
  2. MOSAPRIDE CITRATE [Concomitant]
  3. ROTIGOTINE (ROTIGOTINE) [Suspect]
     Indication: PARKINSON'S DISEASE
     Dosage: SEE IMAGE: TRANSDERMAL
     Route: 062
     Dates: start: 20100323, end: 20100329
  4. ROTIGOTINE (ROTIGOTINE) [Suspect]
     Indication: PARKINSON'S DISEASE
     Dosage: SEE IMAGE: TRANSDERMAL
     Route: 062
     Dates: start: 20100420, end: 20110204
  5. ROTIGOTINE (ROTIGOTINE) [Suspect]
     Indication: PARKINSON'S DISEASE
     Dosage: SEE IMAGE: TRANSDERMAL
     Route: 062
     Dates: start: 20100406, end: 20100413
  6. ROTIGOTINE (ROTIGOTINE) [Suspect]
     Indication: PARKINSON'S DISEASE
     Dosage: SEE IMAGE: TRANSDERMAL
     Route: 062
     Dates: start: 20100329, end: 20100406
  7. ROTIGOTINE (ROTIGOTINE) [Suspect]
     Indication: PARKINSON'S DISEASE
     Dosage: SEE IMAGE: TRANSDERMAL
     Route: 062
     Dates: start: 20100316, end: 20100323
  8. ROTIGOTINE (ROTIGOTINE) [Suspect]
     Indication: PARKINSON'S DISEASE
     Dosage: SEE IMAGE: TRANSDERMAL
     Route: 062
     Dates: start: 20100413, end: 20100420

REACTIONS (1)
  - PYREXIA [None]
